FAERS Safety Report 20372357 (Version 1)
Quarter: 2022Q1

REPORT INFORMATION
  Report Type: Spontaneous
  Country: PE (occurrence: PE)
  Receive Date: 20220124
  Receipt Date: 20220124
  Transmission Date: 20220423
  Serious: Yes (Other)
  Sender: FDA-Public Use
  Company Number: PE-SUN PHARMACEUTICAL INDUSTRIES LTD-2022R1-324083

PATIENT
  Age: 44 Year
  Sex: Male
  Weight: 81 kg

DRUGS (3)
  1. HYDROCHLOROTHIAZIDE [Suspect]
     Active Substance: HYDROCHLOROTHIAZIDE
     Indication: Glucose tolerance impaired
     Dosage: 25 MILLIGRAM, QD
     Route: 065
  2. CARBAMAZEPINE [Concomitant]
     Active Substance: CARBAMAZEPINE
     Indication: Glucose tolerance impaired
     Dosage: 200 MILLIGRAM, TID
     Route: 065
  3. CHLORPROPAMIDE [Concomitant]
     Active Substance: CHLORPROPAMIDE
     Indication: Glucose tolerance impaired
     Dosage: 100 MILLIGRAM, QD
     Route: 065

REACTIONS (1)
  - Disease progression [Unknown]
